FAERS Safety Report 15629784 (Version 1)
Quarter: 2018Q4

REPORT INFORMATION
  Report Type: Report from Study
  Country: None (occurrence: US)
  Receive Date: 20181117
  Receipt Date: 20181117
  Transmission Date: 20190205
  Serious: Yes (Hospitalization)
  Sender: FDA-Public Use
  Company Number: US-ABBVIE-18K-163-2546092-00

PATIENT
  Age: 67 Year
  Sex: Female
  Weight: 59.47 kg

DRUGS (4)
  1. LIPITOR [Concomitant]
     Active Substance: ATORVASTATIN CALCIUM
     Indication: BLOOD CHOLESTEROL INCREASED
  2. HUMIRA [Suspect]
     Active Substance: ADALIMUMAB
     Indication: PSORIASIS
     Route: 058
     Dates: start: 201805, end: 201808
  3. PLAQUENIL [Concomitant]
     Active Substance: HYDROXYCHLOROQUINE SULFATE
     Indication: SYSTEMIC LUPUS ERYTHEMATOSUS
  4. LYRICA [Concomitant]
     Active Substance: PREGABALIN
     Indication: NERVE INJURY

REACTIONS (7)
  - Pain [Recovered/Resolved]
  - Infection [Recovered/Resolved]
  - Dislocation of vertebra [Recovered/Resolved]
  - Paraesthesia [Recovered/Resolved]
  - Sinus headache [Recovering/Resolving]
  - Muscle strain [Recovering/Resolving]
  - Pain [Recovering/Resolving]

NARRATIVE: CASE EVENT DATE: 2018
